FAERS Safety Report 18061216 (Version 1)
Quarter: 2020Q3

REPORT INFORMATION
  Report Type: Report from Study
  Country: TH (occurrence: TH)
  Receive Date: 20200723
  Receipt Date: 20200723
  Transmission Date: 20201103
  Serious: Yes (Other)
  Sender: FDA-Public Use
  Company Number: TH-VIIV HEALTHCARE LIMITED-TH2020GSK136539

PATIENT
  Age: 44 Year
  Sex: Male

DRUGS (3)
  1. CICLOSPORIN [Suspect]
     Active Substance: CYCLOSPORINE
     Indication: PSORIASIS
     Dosage: UNK
  2. LAMIVUDINE. [Suspect]
     Active Substance: LAMIVUDINE
     Indication: PSORIASIS
     Dosage: UNK
  3. ACITRETIN. [Suspect]
     Active Substance: ACITRETIN
     Indication: PSORIASIS
     Dosage: UNK

REACTIONS (4)
  - Hepatocellular carcinoma [Unknown]
  - Hepatitis B reactivation [Unknown]
  - Hepatic cirrhosis [Unknown]
  - Treatment noncompliance [Unknown]
